FAERS Safety Report 8882446 (Version 6)
Quarter: 2013Q4

REPORT INFORMATION
  Report Type: Spontaneous
  Country: JP (occurrence: JP)
  Receive Date: 20121105
  Receipt Date: 20131213
  Transmission Date: 20140711
  Serious: Yes (Death, Life-Threatening, Hospitalization)
  Sender: FDA-Public Use
  Company Number: JP-JNJFOC-20121017391

PATIENT
  Age: 74 Year
  Sex: Male
  Weight: 54 kg

DRUGS (9)
  1. REMICADE [Suspect]
     Indication: RHEUMATOID ARTHRITIS
     Route: 042
     Dates: start: 20120915
  2. REMICADE [Suspect]
     Indication: RHEUMATOID ARTHRITIS
     Route: 042
     Dates: start: 20120901
  3. REMICADE [Suspect]
     Indication: PSORIASIS
     Route: 042
     Dates: start: 20120901
  4. REMICADE [Suspect]
     Indication: PSORIASIS
     Route: 042
     Dates: start: 20120915
  5. REMICADE [Suspect]
     Indication: PSORIATIC ARTHROPATHY
     Route: 042
     Dates: start: 20120901
  6. REMICADE [Suspect]
     Indication: PSORIATIC ARTHROPATHY
     Route: 042
     Dates: start: 20120915
  7. METHOTREXATE [Suspect]
     Indication: PSORIATIC ARTHROPATHY
     Dosage: 2.5 MG/W
     Route: 048
  8. PREDONINE [Suspect]
     Indication: PSORIATIC ARTHROPATHY
     Route: 048
     Dates: start: 201204
  9. TIGASON [Concomitant]
     Indication: PSORIATIC ARTHROPATHY
     Route: 048

REACTIONS (9)
  - Spinal compression fracture [Unknown]
  - Pneumonia staphylococcal [Fatal]
  - Pneumocystis jirovecii pneumonia [Fatal]
  - Disseminated intravascular coagulation [Fatal]
  - Malaise [Not Recovered/Not Resolved]
  - Acute respiratory distress syndrome [Unknown]
  - Blood pressure decreased [Unknown]
  - Dehydration [Recovered/Resolved]
  - Staphylococcal sepsis [Fatal]
